FAERS Safety Report 25633531 (Version 2)
Quarter: 2025Q3

REPORT INFORMATION
  Report Type: Spontaneous
  Country: CA (occurrence: CA)
  Receive Date: 20250801
  Receipt Date: 20250929
  Transmission Date: 20251021
  Serious: Yes (Other)
  Sender: PFIZER
  Company Number: CA-PFIZER INC-202500155117

PATIENT
  Age: 51 Year
  Sex: Female

DRUGS (4)
  1. SOMAVERT [Suspect]
     Active Substance: PEGVISOMANT
     Indication: Acromegaly
     Dosage: 10 MG, 1X/DAY
     Route: 058
     Dates: start: 20250314, end: 2025
  2. CABERGOLINE [Concomitant]
     Active Substance: CABERGOLINE
     Indication: Acromegaly
     Dates: start: 202412
  3. LANREOTIDE [Concomitant]
     Active Substance: LANREOTIDE
  4. LANREOTIDE ACETATE [Concomitant]
     Active Substance: LANREOTIDE ACETATE

REACTIONS (2)
  - Hepatic enzyme increased [Recovered/Resolved]
  - Liver disorder [Recovered/Resolved]

NARRATIVE: CASE EVENT DATE: 20250101
